FAERS Safety Report 9431911 (Version 1)
Quarter: 2013Q3

REPORT INFORMATION
  Report Type: Spontaneous
  Country: RU (occurrence: RU)
  Receive Date: 20130731
  Receipt Date: 20130731
  Transmission Date: 20140515
  Serious: Yes (Other)
  Sender: FDA-Public Use
  Company Number: RU-ROCHE-1254354

PATIENT
  Sex: Female
  Weight: 48 kg

DRUGS (2)
  1. ROACCUTANE [Suspect]
     Indication: PRODUCT USED FOR UNKNOWN INDICATION
     Route: 048
     Dates: start: 20130318
  2. ROACCUTANE [Suspect]
     Route: 048

REACTIONS (4)
  - Rash pruritic [Not Recovered/Not Resolved]
  - Drug ineffective [Recovered/Resolved]
  - Hypersensitivity [Recovered/Resolved]
  - Polycystic ovaries [Not Recovered/Not Resolved]
